FAERS Safety Report 9529757 (Version 1)
Quarter: 2013Q3

REPORT INFORMATION
  Report Type: Report from Study
  Country: US (occurrence: US)
  Receive Date: 20130917
  Receipt Date: 20130917
  Transmission Date: 20140515
  Serious: Yes (Other)
  Sender: FDA-Public Use
  Company Number: US-009507513-1309USA004545

PATIENT
  Age: 71 Year
  Sex: Male
  Weight: 73.3 kg

DRUGS (6)
  1. EZETIMIBE (+) SIMVASTATIN [Suspect]
     Indication: ACUTE CORONARY SYNDROME
     Dosage: UNK
     Route: 048
     Dates: start: 20060504
  2. LORAZEPAM [Concomitant]
     Dosage: UNK
     Route: 048
     Dates: start: 20110316
  3. METFORMIN [Concomitant]
     Dosage: UNK
     Route: 048
     Dates: start: 20070901
  4. ASPIRIN [Concomitant]
     Dosage: UNK
     Route: 048
     Dates: start: 20060501
  5. LISINOPRIL [Concomitant]
     Dosage: UNK
     Route: 048
     Dates: start: 20060502
  6. ATENOLOL [Concomitant]
     Dosage: UNK
     Route: 048
     Dates: start: 20060501

REACTIONS (1)
  - Pleomorphic liposarcoma [Recovered/Resolved]
